FAERS Safety Report 7641126-9 (Version None)
Quarter: 2011Q3

REPORT INFORMATION
  Report Type: 
  Country: None (occurrence: None)
  Receive Date: 20110728
  Receipt Date: 20110715
  Transmission Date: 20111222
  Serious: Yes (Hospitalization, Other)
  Sender: FDA-Public Use
  Company Number: CA-ELI_LILLY_AND_COMPANY-CA201107004197

PATIENT
  Sex: Female

DRUGS (12)
  1. ORAP [Concomitant]
  2. INDAPAMIDE [Concomitant]
  3. INDERAL [Concomitant]
  4. ALTACE [Concomitant]
  5. ZYPREXA [Suspect]
     Dosage: 12 MG, QD
  6. COGENTIN [Concomitant]
  7. URISPAS [Concomitant]
  8. ZYPREXA [Suspect]
     Indication: SCHIZOPHRENIA
     Dosage: 25 MG, QD
  9. EFFEXOR [Concomitant]
  10. SEROQUEL [Concomitant]
  11. NORVASC [Concomitant]
  12. HYDROCHLOROTHIAZIDE [Concomitant]

REACTIONS (25)
  - INFECTED CYST [None]
  - VULVOVAGINAL MYCOTIC INFECTION [None]
  - GASTROENTERITIS VIRAL [None]
  - HYPOAESTHESIA [None]
  - DIABETIC NEPHROPATHY [None]
  - SMALL INTESTINAL OBSTRUCTION [None]
  - MYOCARDIAL INFARCTION [None]
  - SKIN FISSURES [None]
  - ONYCHOGRYPHOSIS [None]
  - OROPHARYNGEAL PAIN [None]
  - EYE PRURITUS [None]
  - PARONYCHIA [None]
  - DYSPEPSIA [None]
  - PAIN IN EXTREMITY [None]
  - DIZZINESS [None]
  - CYSTITIS [None]
  - WEIGHT INCREASED [None]
  - SYNCOPE [None]
  - ALANINE AMINOTRANSFERASE INCREASED [None]
  - ONYCHOMYCOSIS [None]
  - FUNGAL SKIN INFECTION [None]
  - HYPERCHOLESTEROLAEMIA [None]
  - DIABETES MELLITUS [None]
  - DERMAL CYST [None]
  - OVERDOSE [None]
